FAERS Safety Report 24668875 (Version 3)
Quarter: 2024Q4

REPORT INFORMATION
  Report Type: Spontaneous
  Country: JP (occurrence: JP)
  Receive Date: 20241127
  Receipt Date: 20241225
  Transmission Date: 20250115
  Serious: Yes (Other)
  Sender: AMGEN
  Company Number: JP-AMGEN-JPNSP2024231460

PATIENT
  Age: 74 Year
  Sex: Female

DRUGS (3)
  1. EVENITY [Suspect]
     Active Substance: ROMOSOZUMAB-AQQG
     Indication: Osteoporosis
     Dosage: 210 MILLIGRAM, Q2MO
     Route: 058
  2. BENLYSTA [Suspect]
     Active Substance: BELIMUMAB
     Indication: Product used for unknown indication
     Dosage: UNK
     Route: 058
  3. ACTEMRA [Concomitant]
     Active Substance: TOCILIZUMAB
     Indication: Systemic lupus erythematosus
     Dosage: UNK

REACTIONS (2)
  - Rheumatoid arthritis [Unknown]
  - Inappropriate schedule of product administration [Unknown]
